FAERS Safety Report 6158477-X (Version None)
Quarter: 2009Q2

REPORT INFORMATION
  Report Type: 
  Country: None (occurrence: None)
  Receive Date: 20090417
  Receipt Date: 20090416
  Transmission Date: 20091009
  Serious: Yes (Hospitalization)
  Sender: FDA-Public Use
  Company Number: US-BAYER-200836385NA

PATIENT
  Sex: Female
  Weight: 73 kg

DRUGS (5)
  1. BETASERON [Suspect]
     Indication: RELAPSING-REMITTING MULTIPLE SCLEROSIS
     Route: 058
  2. PREMARIN [Concomitant]
     Indication: HYSTERECTOMY
     Route: 048
  3. PROZAC [Concomitant]
     Indication: DEPRESSION
     Route: 048
  4. PROVIGIL [Concomitant]
     Route: 048
  5. IMITREX [Concomitant]
     Route: 058

REACTIONS (4)
  - ASTHENIA [None]
  - INFLUENZA LIKE ILLNESS [None]
  - LIPOSARCOMA [None]
  - TREMOR [None]
